FAERS Safety Report 12491280 (Version 2)
Quarter: 2016Q3

REPORT INFORMATION
  Report Type: Spontaneous
  Country: KR (occurrence: KR)
  Receive Date: 20160623
  Receipt Date: 20160805
  Transmission Date: 20161109
  Serious: Yes (Hospitalization, Other)
  Sender: FDA-Public Use
  Company Number: KR-SUN PHARMACEUTICAL INDUSTRIES LTD-2016R1-118837

PATIENT
  Age: 23 Year
  Sex: Female

DRUGS (9)
  1. MESNA. [Suspect]
     Active Substance: MESNA
     Indication: BURKITT^S LYMPHOMA
     Dosage: UNK
     Route: 065
     Dates: start: 201304, end: 201311
  2. CYCLOPHOSPHAMIDE. [Suspect]
     Active Substance: CYCLOPHOSPHAMIDE
     Indication: BURKITT^S LYMPHOMA
     Dosage: TOTAL OF 8 CYCLES
     Route: 065
     Dates: start: 201304, end: 201311
  3. VINCRISTINE [Suspect]
     Active Substance: VINCRISTINE
     Indication: BURKITT^S LYMPHOMA
     Dosage: TOTAL OF 8 CYCLES
     Route: 065
     Dates: start: 201304, end: 201311
  4. DOXORUBICIN [Suspect]
     Active Substance: DOXORUBICIN
     Indication: BURKITT^S LYMPHOMA
     Dosage: TOTAL OF 8 CYCLES
     Route: 065
     Dates: start: 201304, end: 201311
  5. SODIUM HYDROGEN CARBONATE [Suspect]
     Active Substance: SODIUM BICARBONATE
     Indication: BURKITT^S LYMPHOMA
     Dosage: UNK
     Route: 065
     Dates: start: 201304, end: 201311
  6. CALCIUM FOLINAT [Suspect]
     Active Substance: LEUCOVORIN CALCIUM
     Indication: BURKITT^S LYMPHOMA
     Dosage: UNK
     Route: 065
     Dates: start: 201304, end: 201311
  7. DEXAMETHASONE. [Suspect]
     Active Substance: DEXAMETHASONE
     Indication: BURKITT^S LYMPHOMA
     Dosage: TOTAL OF 8 CYCLES
     Route: 065
     Dates: start: 201304, end: 201311
  8. METHOTREXATE. [Suspect]
     Active Substance: METHOTREXATE
     Indication: BURKITT^S LYMPHOMA
     Dosage: TOTAL OF 8 CYCLES
     Route: 065
     Dates: start: 201304, end: 201311
  9. CYTARABINE. [Suspect]
     Active Substance: CYTARABINE
     Indication: BURKITT^S LYMPHOMA
     Dosage: TOTAL OF 8 CYCLES
     Route: 065
     Dates: start: 201304, end: 201311

REACTIONS (1)
  - Appendicitis [Recovered/Resolved]
